FAERS Safety Report 6332137-4 (Version None)
Quarter: 2009Q3

REPORT INFORMATION
  Report Type: 
  Country: None (occurrence: None)
  Receive Date: 20090827
  Receipt Date: 20090827
  Transmission Date: 20100115
  Serious: Yes (Other)
  Sender: FDA-Public Use
  Company Number: None

PATIENT
  Age: 62 Year
  Sex: Male

DRUGS (1)
  1. FEBUXOSTAT [Suspect]
     Indication: GOUT
     Dosage: 40 MG PO
     Route: 048
     Dates: start: 20090715, end: 20090803

REACTIONS (6)
  - BLOOD URIC ACID INCREASED [None]
  - FLANK PAIN [None]
  - RENAL PAIN [None]
  - URINE ABNORMALITY [None]
  - URINE COLOUR ABNORMAL [None]
  - URINE ODOUR ABNORMAL [None]
